FAERS Safety Report 4758083-5 (Version None)
Quarter: 2005Q3

REPORT INFORMATION
  Report Type: 
  Country: None (occurrence: None)
  Receive Date: 20050831
  Receipt Date: 20050825
  Transmission Date: 20060218
  Serious: Yes (Disabling)
  Sender: FDA-Public Use
  Company Number: AU-MERCK-0508AUS00153

PATIENT
  Age: 75 Year
  Sex: Male

DRUGS (7)
  1. PRINIVIL [Suspect]
     Route: 048
  2. DARBEPOETIN ALFA [Suspect]
     Route: 058
  3. AMLODIPINE BESYLATE [Suspect]
     Route: 048
  4. TELMISARTAN [Suspect]
     Route: 048
  5. FUROSEMIDE [Suspect]
     Route: 065
  6. WARFARIN SODIUM [Suspect]
     Route: 048
  7. ALLOPURINOL [Suspect]
     Route: 048

REACTIONS (5)
  - ASTHENIA [None]
  - HEAT RASH [None]
  - PARAESTHESIA [None]
  - PRURITUS [None]
  - SKIN BURNING SENSATION [None]
